FAERS Safety Report 7030822-2 (Version None)
Quarter: 2010Q4

REPORT INFORMATION
  Report Type: 
  Country: None (occurrence: None)
  Receive Date: 20101006
  Receipt Date: 20100930
  Transmission Date: 20110411
  Serious: No
  Sender: FDA-Public Use
  Company Number: US-PFIZER INC-2010124837

PATIENT
  Age: 22 Year
  Sex: Female
  Weight: 70.295 kg

DRUGS (2)
  1. DEPO-PROVERA [Suspect]
     Indication: CONTRACEPTION
     Dosage: UNK
  2. ORTHO TRI-CYCLEN [Suspect]

REACTIONS (1)
  - MENOMETRORRHAGIA [None]
